FAERS Safety Report 5326234-X (Version None)
Quarter: 2007Q2

REPORT INFORMATION
  Report Type: 
  Country: None (occurrence: None)
  Receive Date: 20070516
  Receipt Date: 20070501
  Transmission Date: 20071010
  Serious: Yes (Hospitalization)
  Sender: FDA-Public Use
  Company Number: AU-GENENTECH-241469

PATIENT
  Sex: Male

DRUGS (3)
  1. BEVACIZUMAB [Suspect]
     Indication: COLORECTAL CANCER METASTATIC
     Dosage: 560 MG, Q3W
     Route: 042
     Dates: start: 20051130
  2. CAPECITABINE [Suspect]
     Indication: COLORECTAL CANCER METASTATIC
     Dosage: 2500 MG/M2, QD
     Route: 048
     Dates: start: 20051130
  3. MITOMYCIN-C BULK POWDER [Suspect]
     Indication: COLORECTAL CANCER METASTATIC
     Dosage: 13 MG, Q6W
     Route: 042

REACTIONS (1)
  - NEPHRITIS INTERSTITIAL [None]
